FAERS Safety Report 9494736 (Version 1)
Quarter: 2013Q3

REPORT INFORMATION
  Report Type: Spontaneous
  Country: US (occurrence: None)
  Receive Date: 20130830
  Receipt Date: 20130830
  Transmission Date: 20140515
  Serious: Yes (Disabling)
  Sender: FDA-Public Use
  Company Number: None

PATIENT
  Age: 74 Year
  Sex: Male
  Weight: 99.79 kg

DRUGS (3)
  1. WELLBUTRIN [Suspect]
     Indication: CHOKING
     Dosage: TWICE DAILY ORAL
     Route: 048
     Dates: start: 2005, end: 2012
  2. WELLBUTRIN [Suspect]
     Indication: SLEEP DISORDER
     Dosage: TWICE DAILY ORAL
     Route: 048
     Dates: start: 2005, end: 2012
  3. WELLBUTRIN [Suspect]
     Indication: TENSION
     Dosage: TWICE DAILY ORAL
     Route: 048
     Dates: start: 2005, end: 2012

REACTIONS (4)
  - Parkinsonism [None]
  - Listless [None]
  - Mental disorder [None]
  - Dysarthria [None]
